FAERS Safety Report 8007655-3 (Version None)
Quarter: 2011Q4

REPORT INFORMATION
  Report Type: 
  Country: None (occurrence: None)
  Receive Date: 20111227
  Receipt Date: 20111221
  Transmission Date: 20120403
  Serious: Yes (Disabling, Other)
  Sender: FDA-Public Use
  Company Number: US-PFIZER INC-2011310394

PATIENT
  Sex: Female
  Weight: 63.492 kg

DRUGS (1)
  1. DEPO-PROVERA [Suspect]
     Indication: CONTRACEPTION
     Dosage: UNK
     Dates: start: 20110301, end: 20110804

REACTIONS (13)
  - PAIN [None]
  - ASTHENIA [None]
  - WEIGHT INCREASED [None]
  - ABDOMINAL DISTENSION [None]
  - HEADACHE [None]
  - ALOPECIA [None]
  - NAUSEA [None]
  - MENORRHAGIA [None]
  - BACK PAIN [None]
  - INFERTILITY FEMALE [None]
  - OSTEOPOROSIS [None]
  - HYPOAESTHESIA [None]
  - DYSMENORRHOEA [None]
